FAERS Safety Report 13049688 (Version 1)
Quarter: 2016Q4

REPORT INFORMATION
  Report Type: Report from Study
  Country: US (occurrence: US)
  Receive Date: 20161221
  Receipt Date: 20161221
  Transmission Date: 20170207
  Serious: Yes (Other)
  Sender: FDA-Public Use
  Company Number: US-AMGEN-USASL2016177278

PATIENT
  Age: 62 Year
  Sex: Female

DRUGS (4)
  1. PROLIA [Suspect]
     Active Substance: DENOSUMAB
     Dosage: 60 MG, UNK
     Route: 065
     Dates: start: 20161020
  2. PREDNISONE. [Concomitant]
     Active Substance: PREDNISONE
     Dosage: UNK
  3. PROLIA [Suspect]
     Active Substance: DENOSUMAB
     Indication: OSTEOPOROSIS POSTMENOPAUSAL
     Dosage: 60 MG, UNK
     Route: 065
     Dates: start: 20151230
  4. RECLAST [Concomitant]
     Active Substance: ZOLEDRONIC ACID
     Indication: SYSTEMIC LUPUS ERYTHEMATOSUS
     Dosage: UNK
     Route: 042

REACTIONS (23)
  - Tibia fracture [Unknown]
  - Lip swelling [Unknown]
  - Nausea [Recovering/Resolving]
  - Mobility decreased [Unknown]
  - Hypertension [Unknown]
  - Toothache [Unknown]
  - Biliary dilatation [Unknown]
  - Pain [Unknown]
  - Asthenia [Unknown]
  - Gastrointestinal oedema [Unknown]
  - Hypoaesthesia [Unknown]
  - Lymphadenopathy [Unknown]
  - Fall [Unknown]
  - Feeling abnormal [Unknown]
  - Diarrhoea [Recovering/Resolving]
  - Oropharyngeal pain [Unknown]
  - Upper limb fracture [Unknown]
  - Tooth disorder [Unknown]
  - Back pain [Unknown]
  - Jaw disorder [Unknown]
  - Oedematous pancreatitis [Unknown]
  - Fibula fracture [Unknown]
  - Vertigo [Unknown]

NARRATIVE: CASE EVENT DATE: 2016
